FAERS Safety Report 6848293-5 (Version None)
Quarter: 2010Q3

REPORT INFORMATION
  Report Type: 
  Country: None (occurrence: None)
  Receive Date: 20100716
  Receipt Date: 20100706
  Transmission Date: 20110219
  Serious: Yes (Hospitalization)
  Sender: FDA-Public Use
  Company Number: DK-ROCHE-699761

PATIENT
  Sex: Female
  Weight: 54 kg

DRUGS (6)
  1. ROACTEMRA [Suspect]
     Dosage: FORM: INFUSION
     Route: 042
     Dates: start: 20090109, end: 20090109
  2. ROACTEMRA [Suspect]
     Route: 042
     Dates: start: 20091021, end: 20091021
  3. ROACTEMRA [Suspect]
     Route: 042
     Dates: start: 20091119, end: 20091119
  4. ROACTEMRA [Suspect]
     Route: 042
     Dates: start: 20091221, end: 20091221
  5. ROACTEMRA [Suspect]
     Route: 042
     Dates: start: 20100118, end: 20100118
  6. METHOTREXATE [Concomitant]
     Route: 048
     Dates: start: 20060214, end: 20100118

REACTIONS (1)
  - ACUTE MYOCARDIAL INFARCTION [None]
